FAERS Safety Report 6046676-7 (Version None)
Quarter: 2009Q1

REPORT INFORMATION
  Report Type: 
  Country: None (occurrence: None)
  Receive Date: 20090122
  Receipt Date: 20080910
  Transmission Date: 20090719
  Serious: Yes (Hospitalization, Other)
  Sender: FDA-Public Use
  Company Number: US-AVENTIS-200816280US

PATIENT
  Age: 81 Year
  Sex: Male

DRUGS (9)
  1. LEFLUNOMIDE [Suspect]
     Indication: RHEUMATOID ARTHRITIS
  2. FUROSEMIDE [Suspect]
  3. DIGOXIN [Concomitant]
  4. WARFARIN SODIUM [Concomitant]
  5. POTASSIUM CHLORIDE [Concomitant]
  6. ROFECOXIB [Concomitant]
  7. CARVEDILOL [Concomitant]
  8. PANTOPRAZOLE SODIUM [Concomitant]
  9. SPIRONOLACTONE [Concomitant]
     Dosage: DOSE: UNK

REACTIONS (6)
  - ELECTROCARDIOGRAM QT PROLONGED [None]
  - EXCORIATION [None]
  - FALL [None]
  - HYPOCALCAEMIA [None]
  - LOSS OF CONSCIOUSNESS [None]
  - MUSCULAR WEAKNESS [None]
